FAERS Safety Report 6162634-6 (Version None)
Quarter: 2009Q2

REPORT INFORMATION
  Report Type: 
  Country: None (occurrence: None)
  Receive Date: 20090421
  Receipt Date: 20090202
  Transmission Date: 20091009
  Serious: No
  Sender: FDA-Public Use
  Company Number: US-ASTRAZENECA-2007UW19137

PATIENT
  Age: 68 Year
  Sex: Male
  Weight: 74.4 kg

DRUGS (5)
  1. CASODEX [Suspect]
     Indication: PROSTATE CANCER
     Route: 048
  2. CASODEX [Suspect]
     Route: 048
     Dates: start: 20060101
  3. CASODEX [Suspect]
     Route: 048
     Dates: start: 20080101
  4. MULTI-VITAMIN [Concomitant]
  5. AMBIEN [Concomitant]
     Dosage: 1/2 TAB
     Route: 048

REACTIONS (3)
  - BACK PAIN [None]
  - MYALGIA [None]
  - PROSTATIC SPECIFIC ANTIGEN INCREASED [None]
